FAERS Safety Report 8029241-1 (Version None)
Quarter: 2012Q1

REPORT INFORMATION
  Report Type: 
  Country: None (occurrence: None)
  Receive Date: 20120106
  Receipt Date: 20120105
  Transmission Date: 20120608
  Serious: Yes (Death, Hospitalization, Other)
  Sender: FDA-Public Use
  Company Number: PHHY2011JM110623

PATIENT
  Age: 63 Year
  Sex: Female

DRUGS (7)
  1. ENALAPRIL MALEATE [Concomitant]
  2. ATENOLOL [Concomitant]
  3. RASILEZ [Suspect]
     Indication: HYPERTENSION
     Dosage: 150 MG, QD
     Route: 048
     Dates: start: 20111201
  4. HYDRALAZINE HCL [Concomitant]
  5. INSULIN [Concomitant]
  6. NIFEDIPINE [Concomitant]
  7. FUROSEMIDE [Concomitant]

REACTIONS (7)
  - HYPERTENSIVE CARDIOMYOPATHY [None]
  - HYPERKALAEMIA [None]
  - ASCITES [None]
  - PULMONARY CONGESTION [None]
  - BRAIN OEDEMA [None]
  - HEPATIC CONGESTION [None]
  - RENAL ATROPHY [None]
